FAERS Safety Report 25725066 (Version 1)
Quarter: 2025Q3

REPORT INFORMATION
  Report Type: Spontaneous
  Country: JO (occurrence: JO)
  Receive Date: 20250826
  Receipt Date: 20250826
  Transmission Date: 20251021
  Serious: Yes (Other)
  Sender: ALKEM
  Company Number: JO-ALKEM LABORATORIES LIMITED-JO-ALKEM-2024-18651

PATIENT
  Age: 19 Year
  Sex: Male

DRUGS (1)
  1. PREGABALIN [Suspect]
     Active Substance: PREGABALIN
     Indication: Product used for unknown indication
     Route: 048

REACTIONS (9)
  - Drug abuse [Unknown]
  - Drug withdrawal syndrome [Unknown]
  - Myalgia [Unknown]
  - Body temperature increased [Unknown]
  - Headache [Unknown]
  - Depression [Unknown]
  - Tremor [Unknown]
  - Insomnia [Unknown]
  - Hyperhidrosis [Unknown]
